FAERS Safety Report 8216511-7 (Version None)
Quarter: 2012Q1

REPORT INFORMATION
  Report Type: 
  Country: None (occurrence: None)
  Receive Date: 20120316
  Receipt Date: 20120301
  Transmission Date: 20120608
  Serious: No
  Sender: FDA-Public Use
  Company Number: US-ENDO PHARMACEUTICALS INC.-ENDN20120001

PATIENT
  Sex: Female

DRUGS (3)
  1. NORVASC [Concomitant]
     Indication: BLOOD PRESSURE INCREASED
     Dosage: 5 MG
     Route: 048
  2. ENDODAN [Suspect]
     Indication: PAIN
     Dosage: UNK
     Route: 048
     Dates: start: 20120228
  3. VASOTEC [Concomitant]
     Indication: BLOOD PRESSURE INCREASED
     Dosage: 2 MG
     Route: 048

REACTIONS (2)
  - DRUG INEFFECTIVE [None]
  - SOMNOLENCE [None]
